FAERS Safety Report 4707141-X (Version None)
Quarter: 2005Q3

REPORT INFORMATION
  Report Type: 
  Country: None (occurrence: None)
  Receive Date: 20050706
  Receipt Date: 20050622
  Transmission Date: 20060218
  Serious: Yes (Hospitalization)
  Sender: FDA-Public Use
  Company Number: PHBS2005NL09036

PATIENT
  Age: 3 Year
  Sex: Male

DRUGS (1)
  1. ELIDEL [Suspect]
     Dosage: 20-25 MG
     Route: 048

REACTIONS (1)
  - MEDICATION ERROR [None]
